FAERS Safety Report 8216936-X (Version None)
Quarter: 2012Q1

REPORT INFORMATION
  Report Type: 
  Country: None (occurrence: None)
  Receive Date: 20120319
  Receipt Date: 20120307
  Transmission Date: 20120608
  Serious: Yes (Other)
  Sender: FDA-Public Use
  Company Number: US-BRISTOL-MYERS SQUIBB COMPANY-16409419

PATIENT
  Age: 65 Year
  Sex: Male

DRUGS (4)
  1. LEXAPRO [Suspect]
  2. ABILIFY [Suspect]
     Indication: DEPRESSION
     Route: 048
     Dates: start: 20120125
  3. LIPITOR [Suspect]
  4. XANAX [Suspect]

REACTIONS (1)
  - DEAFNESS UNILATERAL [None]
